FAERS Safety Report 25058896 (Version 1)
Quarter: 2025Q1

REPORT INFORMATION
  Report Type: Spontaneous
  Country: GB (occurrence: GB)
  Receive Date: 20250310
  Receipt Date: 20250310
  Transmission Date: 20250409
  Serious: Yes (Hospitalization)
  Sender: MYLAN
  Company Number: None

PATIENT
  Age: 64 Year
  Sex: Male

DRUGS (14)
  1. APIXABAN [Suspect]
     Active Substance: APIXABAN
     Indication: Product used for unknown indication
  2. BECLOMETHASONE DIPROPIONATE\FORMOTEROL FUMARATE\GLYCOPYRROLATE [Concomitant]
     Active Substance: BECLOMETHASONE DIPROPIONATE\FORMOTEROL FUMARATE\GLYCOPYRROLATE
     Dosage: 2 DOSAGE FORM, BID (DOSE INHALER TWO PUFFS TO BE INHALED TWICE A DAY - POD ON WARD)
  3. ZOPICLONE [Concomitant]
     Active Substance: ZOPICLONE
     Dosage: 1 DOSAGE FORM, PM (7.5 MG TABLETS ONE TO BE TAKEN AT NIGHT)
  4. RAMIPRIL [Concomitant]
     Active Substance: RAMIPRIL
     Dosage: 1 DOSAGE FORM, QD (10 MG CAPSULES ONE TO BE TAKEN EACH DAY)
  5. PROPRANOLOL [Concomitant]
     Active Substance: PROPRANOLOL HYDROCHLORIDE
     Dosage: 40 MILLIGRAM, BID (ORAL SOLUTION SUGAR FREE 40 MG BD)
  6. CARBOCYSTEINE [Concomitant]
     Active Substance: CARBOCYSTEINE
     Dosage: 750 MILLIGRAM, TID (ORAL SOLUTION 750 MG TDS)
  7. SODIUM CHLORIDE [Concomitant]
     Active Substance: SODIUM CHLORIDE
     Dosage: 2.5 MILLILITER, BID (2.5 ML UNIT DOSE AMPOULES BD AS DIRECTED)
  8. PREGABALIN [Concomitant]
     Active Substance: PREGABALIN
     Dosage: 1 DOSAGE FORM, BID (75 MG CAPSULES ONE TO BE TAKEN TWICE A DAY)
  9. LANSOPRAZOLE [Concomitant]
     Active Substance: LANSOPRAZOLE
     Dosage: 1 DOSAGE FORM, AM (30 MG GASTRO-RESISTANT CAPSULES ONE TO BE TAKEN EACH MORNING)
  10. ALBUTEROL [Concomitant]
     Active Substance: ALBUTEROL
  11. ALBUTEROL [Concomitant]
     Active Substance: ALBUTEROL
  12. ACETAMINOPHEN [Concomitant]
     Active Substance: ACETAMINOPHEN
     Dosage: 2 DOSAGE FORM, QID (500 MG SOLUBLE TABLETS 2 FOUR TIMES A DAY)
  13. VENLAFAXINE [Concomitant]
     Active Substance: VENLAFAXINE HYDROCHLORIDE
     Dosage: 1 DOSAGE FORM, QD (75 MG TABLETS ONE TO BE TAKEN EACH DAY)
  14. RANITIDINE HYDROCHLORIDE [Concomitant]
     Active Substance: RANITIDINE HYDROCHLORIDE
     Dosage: 10 MILLILITER, QID (PEPTAC LIQUID ANISEED 10 ML QDS)

REACTIONS (1)
  - Gastrointestinal stoma output increased [Recovered/Resolved]
